FAERS Safety Report 4303361-7 (Version None)
Quarter: 2004Q1

REPORT INFORMATION
  Report Type: 
  Country: None (occurrence: None)
  Receive Date: 20040223
  Receipt Date: 20040211
  Transmission Date: 20041129
  Serious: Yes (Hospitalization)
  Sender: FDA-Public Use
  Company Number: 03P-163-0240923-00

PATIENT
  Age: 30 Year
  Sex: Male

DRUGS (5)
  1. DILAUDID [Suspect]
     Indication: PAIN
     Dosage: SEE IMAGE
     Dates: end: 20030401
  2. DILAUDID [Suspect]
     Indication: PAIN
     Dosage: SEE IMAGE
     Dates: start: 20030101, end: 20030701
  3. ERL080 [Suspect]
     Indication: RENAL TRANSPLANT
     Dosage: 1080 MG, 2 IN 1 D, ORAL
     Route: 048
     Dates: start: 20030130
  4. CYCLOSPORINE [Concomitant]
  5. ROSIGLITZONE MALEATE [Concomitant]

REACTIONS (23)
  - ANAEMIA [None]
  - ARTHRALGIA [None]
  - BLOOD LACTATE DEHYDROGENASE INCREASED [None]
  - BONE PAIN [None]
  - CONCOMITANT DISEASE PROGRESSION [None]
  - CONFUSIONAL STATE [None]
  - CULTURE POSITIVE [None]
  - DIABETES MELLITUS INADEQUATE CONTROL [None]
  - DIABETIC KETOACIDOSIS [None]
  - DIFFICULTY IN WALKING [None]
  - HAEMOLYSIS [None]
  - HYPOXIA [None]
  - OEDEMA PERIPHERAL [None]
  - PNEUMOCOCCAL SEPSIS [None]
  - PNEUMONIA [None]
  - POST PROCEDURAL COMPLICATION [None]
  - PULMONARY INFARCTION [None]
  - RENAL FAILURE ACUTE [None]
  - SICKLE CELL ANAEMIA WITH CRISIS [None]
  - STAPHYLOCOCCAL INFECTION [None]
  - URETHRITIS [None]
  - VENOUS STENOSIS [None]
  - WEIGHT INCREASED [None]
